FAERS Safety Report 18979568 (Version 1)
Quarter: 2021Q1

REPORT INFORMATION
  Report Type: Spontaneous
  Country: US (occurrence: US)
  Receive Date: 20210308
  Receipt Date: 20210308
  Transmission Date: 20210420
  Serious: Yes (Hospitalization, Other)
  Sender: FDA-Public Use
  Company Number: US-MICRO LABS LIMITED-ML2021-00655

PATIENT
  Age: 2 Year
  Sex: Female

DRUGS (8)
  1. LEVETIRACETAM. [Suspect]
     Active Substance: LEVETIRACETAM
     Indication: EPILEPSY
  2. LEVETIRACETAM. [Suspect]
     Active Substance: LEVETIRACETAM
  3. LEVETIRACETAM. [Suspect]
     Active Substance: LEVETIRACETAM
  4. MIDAZOLAM. [Concomitant]
     Active Substance: MIDAZOLAM
  5. VALPROIC ACID. [Concomitant]
     Active Substance: VALPROIC ACID
  6. LORAZEPAM. [Concomitant]
     Active Substance: LORAZEPAM
  7. PENTOBARBITAL. [Concomitant]
     Active Substance: PENTOBARBITAL
  8. CLOBAZAM. [Concomitant]
     Active Substance: CLOBAZAM

REACTIONS (1)
  - Seizure [Recovered/Resolved]
